FAERS Safety Report 21799141 (Version 2)
Quarter: 2023Q1

REPORT INFORMATION
  Report Type: Report from Study
  Country: US (occurrence: US)
  Receive Date: 20221230
  Receipt Date: 20230101
  Transmission Date: 20230417
  Serious: Yes (Other)
  Sender: FDA-Public Use
  Company Number: US-ABBVIE-4252883

PATIENT
  Sex: Female
  Weight: 148.32 kg

DRUGS (2)
  1. HUMIRA [Suspect]
     Active Substance: ADALIMUMAB
     Indication: Psoriasis
     Dosage: CITRATE FREE
     Route: 058
     Dates: start: 20220901, end: 20221202
  2. HUMIRA [Suspect]
     Active Substance: ADALIMUMAB
     Indication: Psoriatic arthropathy

REACTIONS (5)
  - Cardiac failure congestive [Not Recovered/Not Resolved]
  - Multimorbidity [Unknown]
  - Arthralgia [Not Recovered/Not Resolved]
  - General symptom [Unknown]
  - Grip strength decreased [Not Recovered/Not Resolved]
